APPROVED DRUG PRODUCT: METHYLPHENIDATE HYDROCHLORIDE
Active Ingredient: METHYLPHENIDATE HYDROCHLORIDE
Strength: 10MG
Dosage Form/Route: CAPSULE, EXTENDED RELEASE;ORAL
Application: A200886 | Product #001 | TE Code: AB1
Applicant: DR REDDYS LABORATORIES SA
Approved: Feb 26, 2018 | RLD: No | RS: No | Type: RX